FAERS Safety Report 9982384 (Version 1)
Quarter: 2014Q1

REPORT INFORMATION
  Report Type: Report from Study
  Country: US (occurrence: US)
  Receive Date: 20140307
  Receipt Date: 20140307
  Transmission Date: 20141002
  Serious: No
  Sender: FDA-Public Use
  Company Number: US-ABBVIE-13P-163-1179616-00

PATIENT
  Age: 59 Year
  Sex: Female

DRUGS (13)
  1. HUMIRA [Suspect]
     Indication: CROHN^S DISEASE
     Dates: start: 20130903
  2. LITHIUM [Concomitant]
     Indication: BIPOLAR DISORDER
  3. IMURAN [Concomitant]
     Indication: CROHN^S DISEASE
  4. METFORMIN [Concomitant]
     Indication: DIABETES MELLITUS
  5. CARVEDILOL [Concomitant]
     Indication: HYPERTENSION
  6. RESTORIL [Concomitant]
     Indication: INSOMNIA
     Dosage: AT HOUR OF SLEEP
  7. PROTONIX [Concomitant]
     Indication: GASTROOESOPHAGEAL REFLUX DISEASE
  8. VITAMIN D3 [Concomitant]
     Indication: VITAMIN D DEFICIENCY
  9. PRAVASTATIN [Concomitant]
     Indication: BLOOD CHOLESTEROL INCREASED
  10. VITAMIN C [Concomitant]
     Indication: PRODUCT USED FOR UNKNOWN INDICATION
  11. MULTIPLE VITAMINS [Concomitant]
     Indication: PRODUCT USED FOR UNKNOWN INDICATION
     Dosage: DAILY
  12. ACTOS [Concomitant]
     Indication: DIABETES MELLITUS
  13. LANTUS [Concomitant]

REACTIONS (2)
  - Musculoskeletal pain [Not Recovered/Not Resolved]
  - Back pain [Not Recovered/Not Resolved]
